FAERS Safety Report 5305233-8 (Version None)
Quarter: 2007Q2

REPORT INFORMATION
  Report Type: 
  Country: None (occurrence: None)
  Receive Date: 20070424
  Receipt Date: 20070420
  Transmission Date: 20071010
  Serious: Yes (Other)
  Sender: FDA-Public Use
  Company Number: US-RB-006002-07

PATIENT
  Age: 35 Year
  Sex: Male
  Weight: 83.25 kg

DRUGS (5)
  1. SUBOXONE [Suspect]
     Route: 060
     Dates: start: 20061101, end: 20061201
  2. SUBOXONE [Suspect]
     Route: 060
     Dates: start: 20061201
  3. TOPROL-XL [Concomitant]
     Indication: HYPERTENSION
     Dosage: TAKEN FOR YEARS, DOSE UNKNOWN
     Route: 048
  4. HYZAAR [Concomitant]
     Indication: HYPERTENSION
     Dosage: BEEN ON MEDICATION FOR YEARS
     Route: 048
  5. ZOLOFT [Concomitant]
     Indication: DEPRESSION
     Dosage: DOSAGE UNKNOWN
     Route: 048
     Dates: start: 20070418

REACTIONS (7)
  - DIZZINESS [None]
  - HAEMATURIA [None]
  - HYPERTENSION [None]
  - HYPOTENSION [None]
  - INTENTIONAL DRUG MISUSE [None]
  - MYDRIASIS [None]
  - TREMOR [None]
